FAERS Safety Report 4977455-7 (Version None)
Quarter: 2006Q2

REPORT INFORMATION
  Report Type: 
  Country: None (occurrence: None)
  Receive Date: 20060413
  Receipt Date: 20060406
  Transmission Date: 20061013
  Serious: Yes (Disabling)
  Sender: FDA-Public Use
  Company Number: 2006047887

PATIENT
  Age: 75 Year
  Sex: Female
  Weight: 79.8 kg

DRUGS (5)
  1. CARDURA XL [Suspect]
     Indication: HYPERTENSION
     Dosage: 4 MG, ORAL
     Route: 048
     Dates: start: 20051128, end: 20060125
  2. DIGOXIN [Concomitant]
  3. WARFARIN SODIUM [Concomitant]
  4. VERAPAMIL [Concomitant]
  5. DOXAZOSIN [Concomitant]

REACTIONS (8)
  - ARTHRALGIA [None]
  - DIPLOPIA [None]
  - DRUG WITHDRAWAL SYNDROME [None]
  - MALAISE [None]
  - MYALGIA [None]
  - NOCTURIA [None]
  - SKIN IRRITATION [None]
  - TREMOR [None]
